FAERS Safety Report 6836791-X (Version None)
Quarter: 2010Q3

REPORT INFORMATION
  Report Type: 
  Country: None (occurrence: None)
  Receive Date: 20100708
  Receipt Date: 20100623
  Transmission Date: 20110219
  Serious: Yes (Hospitalization, Other)
  Sender: FDA-Public Use
  Company Number: ALK_01327_2010

PATIENT
  Age: 51 Year
  Sex: Female
  Weight: 72.5755 kg

DRUGS (11)
  1. VIVITROL [Suspect]
     Indication: ALCOHOLISM
     Dosage: 380 MG 1X/MONTH INTRAMUSCULAR
     Route: 030
     Dates: start: 20091105, end: 20091105
  2. SYNTHROID [Concomitant]
  3. BUPROPION [Concomitant]
  4. ASPIRIN [Concomitant]
  5. CLOPIDOGREL [Concomitant]
  6. FOLIC ACID [Concomitant]
  7. LASIX [Concomitant]
  8. MULTI-VITAMIN [Concomitant]
  9. OMEPRAZOLE [Concomitant]
  10. POTASSIUM CHLORIDE [Concomitant]
  11. SOTALOL HCL [Concomitant]

REACTIONS (12)
  - BACTERIAL INFECTION [None]
  - CELLULITIS [None]
  - ENTEROBACTER INFECTION [None]
  - HAEMATOMA [None]
  - IMPAIRED HEALING [None]
  - INJECTION SITE INDURATION [None]
  - INJECTION SITE NECROSIS [None]
  - KLEBSIELLA INFECTION [None]
  - LABORATORY TEST ABNORMAL [None]
  - SCAB [None]
  - STREPTOCOCCAL INFECTION [None]
  - WOUND INFECTION PSEUDOMONAS [None]
